FAERS Safety Report 8495157-X (Version None)
Quarter: 2012Q3

REPORT INFORMATION
  Report Type: 
  Country: None (occurrence: None)
  Receive Date: 20120709
  Receipt Date: 20120628
  Transmission Date: 20120928
  Serious: Yes (Other)
  Sender: FDA-Public Use
  Company Number: US-US-EMD SERONO, INC.-7144433

PATIENT
  Sex: Female

DRUGS (1)
  1. REBIF [Suspect]
     Indication: MULTIPLE SCLEROSIS
     Route: 058
     Dates: start: 20090518

REACTIONS (4)
  - MENINGITIS [None]
  - FALL [None]
  - MULTIPLE SCLEROSIS RELAPSE [None]
  - INJECTION SITE URTICARIA [None]
